FAERS Safety Report 4453221-6 (Version None)
Quarter: 2004Q3

REPORT INFORMATION
  Report Type: 
  Country: None (occurrence: None)
  Receive Date: 20040901
  Receipt Date: 20040804
  Transmission Date: 20050211
  Serious: Yes (Other)
  Sender: FDA-Public Use
  Company Number: US083498

PATIENT
  Sex: Male

DRUGS (10)
  1. ENBREL [Suspect]
     Indication: RHEUMATOID ARTHRITIS
     Dosage: 25 MG, 2 IN 1 WEEKS, SC
     Route: 058
     Dates: start: 20030301
  2. HYDROXYCHLOROQUINE SULFATE [Concomitant]
  3. CELECOXIB [Concomitant]
  4. LANSOPRAZOLE [Concomitant]
  5. ATORVASTATIN CALCIUM [Concomitant]
  6. CETIRIZINE HCL [Concomitant]
  7. HYDROCHLOROTHIAZIDE [Concomitant]
  8. IRBESARTAN [Concomitant]
  9. DILTIAZEM HYDROCHLORIDE [Concomitant]
  10. ALENDRONATE SODIUM [Concomitant]

REACTIONS (1)
  - LYMPHOMA [None]
